FAERS Safety Report 19044583 (Version 1)
Quarter: 2021Q1

REPORT INFORMATION
  Report Type: Spontaneous
  Country: US (occurrence: US)
  Receive Date: 20210322
  Receipt Date: 20210322
  Transmission Date: 20210420
  Serious: Yes (Hospitalization)
  Sender: FDA-Public Use
  Company Number: US-GLAXOSMITHKLINE-US2021063885

PATIENT
  Age: 61 Year
  Sex: Female

DRUGS (1)
  1. TRELEGY ELLIPTA [Suspect]
     Active Substance: FLUTICASONE FUROATE\UMECLIDINIUM BROMIDE\VILANTEROL TRIFENATATE
     Indication: CHRONIC OBSTRUCTIVE PULMONARY DISEASE
     Dosage: 1 PUFF(S), QD, 100?62.5?25MCG
     Dates: start: 20210304, end: 20210308

REACTIONS (2)
  - Condition aggravated [Unknown]
  - Pulmonary pain [Recovered/Resolved]

NARRATIVE: CASE EVENT DATE: 20210304
